FAERS Safety Report 4795036-5 (Version None)
Quarter: 2005Q4

REPORT INFORMATION
  Report Type: 
  Country: None (occurrence: None)
  Receive Date: 20051012
  Receipt Date: 20050912
  Transmission Date: 20060501
  Serious: Yes (Hospitalization, Other)
  Sender: FDA-Public Use
  Company Number: PHBS2005CL13379

PATIENT
  Age: 60 Year
  Sex: Female

DRUGS (10)
  1. ZELMAC [Suspect]
     Dosage: UNK, QD
     Route: 048
     Dates: start: 20050401
  2. SYMBICORT TURBUHALER [Concomitant]
     Indication: ASTHMA
  3. LORATADINE [Concomitant]
     Indication: HYPERSENSITIVITY
  4. DIURETICS [Concomitant]
     Indication: HYPERTENSION
  5. LEVOSULPIRIDE [Concomitant]
  6. EZETIMIBE [Concomitant]
  7. GEMFIBROZIL [Concomitant]
  8. OMEPRAZOLE [Concomitant]
     Dosage: UNK, BID
  9. CISAPRIDE [Concomitant]
     Dosage: UNK, BID
  10. AMOXICILLIN [Concomitant]

REACTIONS (17)
  - ABDOMINAL DISTENSION [None]
  - ABDOMINAL PAIN [None]
  - ARTERIOSCLEROSIS [None]
  - ASTHMA [None]
  - COLITIS ISCHAEMIC [None]
  - CONDITION AGGRAVATED [None]
  - CONSTIPATION [None]
  - DIVERTICULITIS [None]
  - DYSGEUSIA [None]
  - GASTROINTESTINAL NECROSIS [None]
  - HAEMATEMESIS [None]
  - HEPATIC STEATOSIS [None]
  - ILEUS PARALYTIC [None]
  - NAUSEA [None]
  - NEUROGENIC BLADDER [None]
  - URINARY TRACT INFECTION [None]
  - VOMITING [None]
